FAERS Safety Report 8366399-9 (Version None)
Quarter: 2012Q2

REPORT INFORMATION
  Report Type: 
  Country: None (occurrence: None)
  Receive Date: 20120517
  Receipt Date: 20120507
  Transmission Date: 20120825
  Serious: Yes (Hospitalization)
  Sender: FDA-Public Use
  Company Number: ES-PFIZER INC-2012117309

PATIENT
  Age: 69 Year
  Sex: Female

DRUGS (6)
  1. OMEPRAZOLE [Concomitant]
     Dosage: UNK
     Dates: start: 20080301, end: 20111226
  2. AMIODARONE HCL [Suspect]
     Indication: ATRIAL FIBRILLATION
     Dosage: UNK
     Route: 048
     Dates: start: 20111218, end: 20111226
  3. ACENOCOUMAROL [Concomitant]
     Dosage: UNK
     Dates: start: 20101216, end: 20111226
  4. CLOPIDOGREL [Concomitant]
     Dosage: UNK
     Dates: start: 20080301
  5. FUROSEMIDE [Suspect]
     Indication: RENAL FAILURE CHRONIC
     Dosage: UNK
     Route: 048
     Dates: start: 20110101
  6. BISOPROLOL FUMARATE [Suspect]
     Indication: ATRIAL FIBRILLATION
     Dosage: UNK
     Route: 048
     Dates: start: 20110101, end: 20111226

REACTIONS (3)
  - NODAL RHYTHM [None]
  - RENAL FAILURE ACUTE [None]
  - ATRIOVENTRICULAR BLOCK [None]
